FAERS Safety Report 25346099 (Version 1)
Quarter: 2025Q2

REPORT INFORMATION
  Report Type: Spontaneous
  Country: DE (occurrence: DE)
  Receive Date: 20250522
  Receipt Date: 20250522
  Transmission Date: 20250717
  Serious: Yes (Hospitalization, Other)
  Sender: SUNOVION
  Company Number: None

PATIENT

DRUGS (6)
  1. VIBEGRON [Suspect]
     Active Substance: VIBEGRON
     Indication: Urge incontinence
     Dosage: 1 DF, QD (1/DAY),1-0-0
     Route: 048
     Dates: start: 20250212, end: 20250215
  2. ALDACTONE [Concomitant]
     Active Substance: SPIRONOLACTONE
     Indication: Product used for unknown indication
     Dosage: 1 DF, QD (1/DAY), 1-0-0
     Route: 065
     Dates: start: 20250101, end: 20250428
  3. TELMISARTAN [Concomitant]
     Active Substance: TELMISARTAN
     Indication: Product used for unknown indication
     Route: 065
     Dates: start: 20250101, end: 20250428
  4. METOPROLOL [Concomitant]
     Active Substance: METOPROLOL
     Indication: Product used for unknown indication
     Route: 065
     Dates: start: 20250101, end: 20250428
  5. EZETIMIBE\ROSUVASTATIN [Concomitant]
     Active Substance: EZETIMIBE\ROSUVASTATIN
     Indication: Product used for unknown indication
     Route: 065
     Dates: start: 20250101, end: 20250428
  6. ASPIRIN [Concomitant]
     Active Substance: ASPIRIN
     Indication: Product used for unknown indication
     Dosage: 1 DF, QD (1/DAY), 1-0-0
     Route: 065
     Dates: start: 20250101, end: 20250228

REACTIONS (4)
  - Cardiac failure chronic [Recovering/Resolving]
  - Atrioventricular block [Recovering/Resolving]
  - Condition aggravated [Recovering/Resolving]
  - Limb discomfort [Recovering/Resolving]

NARRATIVE: CASE EVENT DATE: 20250215
